FAERS Safety Report 6147932-4 (Version None)
Quarter: 2009Q2

REPORT INFORMATION
  Report Type: 
  Country: None (occurrence: None)
  Receive Date: 20090408
  Receipt Date: 20090331
  Transmission Date: 20091009
  Serious: Yes (Other)
  Sender: FDA-Public Use
  Company Number: PHHY2009GB03011

PATIENT
  Sex: Male

DRUGS (3)
  1. CLOZARIL [Suspect]
     Indication: SCHIZOPHRENIA
     Dosage: 100 MG AM 200 MG PM
     Route: 048
     Dates: start: 20090120
  2. RISPERIDONE [Concomitant]
     Indication: SCHIZOPHRENIA
     Dosage: 37.5 MG
     Route: 030
     Dates: start: 20080901, end: 20090102
  3. BECLOMETHASONE DIPROPIONATE [Concomitant]

REACTIONS (5)
  - DENTAL CARIES [None]
  - INFECTION [None]
  - PAIN [None]
  - TACHYCARDIA [None]
  - TOOTH EXTRACTION [None]
